FAERS Safety Report 22978960 (Version 6)
Quarter: 2023Q4

REPORT INFORMATION
  Report Type: Report from Study
  Country: BE (occurrence: BE)
  Receive Date: 20230925
  Receipt Date: 20231130
  Transmission Date: 20240109
  Serious: Yes (Hospitalization, Other)
  Sender: FDA-Public Use
  Company Number: BE-BAYER-2023A128782

PATIENT
  Age: 65 Year
  Sex: Female

DRUGS (8)
  1. REGORAFENIB [Suspect]
     Active Substance: REGORAFENIB
     Indication: Rectal cancer stage II
     Dosage: 80 MG, QD
     Route: 048
     Dates: start: 20230828, end: 20230910
  2. REGORAFENIB [Suspect]
     Active Substance: REGORAFENIB
     Indication: Rectal cancer stage II
     Dosage: UNK
     Dates: start: 20230925
  3. NIVOLUMAB [Suspect]
     Active Substance: NIVOLUMAB
     Indication: Rectal cancer stage II
     Dosage: 240 MG, Q2WK
     Route: 042
     Dates: start: 20230828, end: 20230828
  4. NIVOLUMAB [Suspect]
     Active Substance: NIVOLUMAB
     Indication: Rectal cancer stage III
  5. IMODIUM [Concomitant]
     Active Substance: LOPERAMIDE HYDROCHLORIDE
     Dosage: 2PILS AND 1PILS AFTER EACH DIARRHEA EPISODE
  6. BUTYLSCOPOLAMINE BROMIDE [Concomitant]
     Active Substance: BUTYLSCOPOLAMINE BROMIDE
     Dosage: 2 DF, TID
  7. CIPROFLOXACIN HYDROCHLORIDE [Concomitant]
     Active Substance: CIPROFLOXACIN HYDROCHLORIDE
     Indication: Urinary tract infection
     Dosage: UNK
     Dates: start: 20231014, end: 20231020
  8. LIOTHYRONINE [Concomitant]
     Active Substance: LIOTHYRONINE
     Indication: Hypothyroidism

REACTIONS (8)
  - Thyroiditis [Not Recovered/Not Resolved]
  - Hyperbilirubinaemia [Recovered/Resolved]
  - Hyperbilirubinaemia [Not Recovered/Not Resolved]
  - Transaminases increased [Recovered/Resolved]
  - Confusional state [Recovered/Resolved]
  - Diarrhoea [Not Recovered/Not Resolved]
  - Transaminases increased [Not Recovered/Not Resolved]
  - Hepatitis toxic [Not Recovered/Not Resolved]

NARRATIVE: CASE EVENT DATE: 20230904
